FAERS Safety Report 9843479 (Version 1)
Quarter: 2013Q4

REPORT INFORMATION
  Report Type: Spontaneous
  Country: US (occurrence: None)
  Receive Date: 20131223
  Receipt Date: 20131223
  Transmission Date: 20140711
  Serious: Yes (Other)
  Sender: FDA-Public Use
  Company Number: 220122LEO

PATIENT
  Age: 47 Year
  Sex: Male

DRUGS (7)
  1. PICATO [Suspect]
     Indication: ACTINIC KERATOSIS
     Route: 061
     Dates: start: 20130109, end: 20130111
  2. GABAPENTIN [Concomitant]
  3. ALLOPURINOL [Concomitant]
  4. MOBIC [Concomitant]
  5. ENBREL [Concomitant]
  6. PLAQUENIL [Concomitant]
  7. PREDNISONE [Concomitant]

REACTIONS (3)
  - Application site erythema [None]
  - Application site pain [None]
  - Drug administered at inappropriate site [None]
